FAERS Safety Report 18554567 (Version 1)
Quarter: 2020Q4

REPORT INFORMATION
  Report Type: Spontaneous
  Country: US (occurrence: US)
  Receive Date: 20201127
  Receipt Date: 20201127
  Transmission Date: 20210114
  Serious: Yes (Hospitalization)
  Sender: FDA-Public Use
  Company Number: US-HIKMA PHARMACEUTICALS USA INC.-US-H14001-20-05353

PATIENT
  Age: 57 Year
  Sex: Male

DRUGS (10)
  1. KETAMINE [Suspect]
     Active Substance: KETAMINE
     Dosage: 0.5 MG/KG/HR
     Route: 065
  2. KETAMINE [Suspect]
     Active Substance: KETAMINE
     Dosage: 0.25 MG/KG/HR
     Route: 065
  3. ASPIRIN. [Concomitant]
     Active Substance: ASPIRIN
     Indication: PRODUCT USED FOR UNKNOWN INDICATION
     Route: 065
  4. PERAMPANEL [Concomitant]
     Active Substance: PERAMPANEL
     Indication: PRODUCT USED FOR UNKNOWN INDICATION
     Route: 065
  5. KETAMINE [Suspect]
     Active Substance: KETAMINE
     Indication: SUBDURAL HAEMATOMA
     Dosage: 0.25 MG/KG/HR
     Route: 065
  6. KETAMINE [Suspect]
     Active Substance: KETAMINE
     Dosage: 0.25 MG/KG/HR
     Route: 065
  7. KETAMINE [Suspect]
     Active Substance: KETAMINE
     Dosage: 0.75 MG/KG/HR
     Route: 065
  8. KETAMINE [Suspect]
     Active Substance: KETAMINE
     Dosage: 0.5 MG/KG/HR
     Route: 065
  9. LEVETIRACETAM. [Concomitant]
     Active Substance: LEVETIRACETAM
     Indication: SEIZURE PROPHYLAXIS
     Route: 065
  10. KETAMINE [Suspect]
     Active Substance: KETAMINE
     Dosage: 0.5 MG/KG/HR
     Route: 065

REACTIONS (4)
  - Somnolence [Recovering/Resolving]
  - Productive cough [Recovering/Resolving]
  - Grunting [Recovering/Resolving]
  - Depressed level of consciousness [Recovering/Resolving]
